FAERS Safety Report 11750590 (Version 1)
Quarter: 2015Q4

REPORT INFORMATION
  Report Type: Spontaneous
  Country: US (occurrence: US)
  Receive Date: 20151118
  Receipt Date: 20151118
  Transmission Date: 20160304
  Serious: Yes (Hospitalization)
  Sender: FDA-Public Use
  Company Number: US-TAIHO ONCOLOGY INC-EU-2015-00187

PATIENT
  Age: 81 Year
  Sex: Male
  Weight: 64 kg

DRUGS (6)
  1. COLACE [Concomitant]
     Active Substance: DOCUSATE SODIUM
     Indication: CONSTIPATION
     Dosage: NI
  2. TAMSULOSIN [Concomitant]
     Active Substance: TAMSULOSIN
     Dosage: NI
  3. MIRALAX [Concomitant]
     Active Substance: POLYETHYLENE GLYCOL 3350
     Indication: CONSTIPATION
     Dosage: NI
  4. LONSURF [Suspect]
     Active Substance: TIPIRACIL HYDROCHLORIDE\TRIFLURIDINE
     Indication: COLON CANCER METASTATIC
     Route: 048
     Dates: start: 20151012
  5. PREDNISONE. [Concomitant]
     Active Substance: PREDNISONE
     Indication: ANTIINFLAMMATORY THERAPY
     Dosage: NI
  6. ZOFRAN [Concomitant]
     Active Substance: ONDANSETRON HYDROCHLORIDE
     Indication: NAUSEA
     Dosage: NI

REACTIONS (3)
  - Anxiety [Recovering/Resolving]
  - Dyspnoea [Recovering/Resolving]
  - Drug prescribing error [None]

NARRATIVE: CASE EVENT DATE: 201510
